FAERS Safety Report 7831182-7 (Version None)
Quarter: 2011Q4

REPORT INFORMATION
  Report Type: 
  Country: None (occurrence: None)
  Receive Date: 20111019
  Receipt Date: 20111013
  Transmission Date: 20120403
  Serious: Yes (Other)
  Sender: FDA-Public Use
  Company Number: GER/UKI/11/0021555

PATIENT
  Age: 68 Year
  Sex: Female
  Weight: 77.5 kg

DRUGS (1)
  1. CLOPIDOGREL [Suspect]
     Indication: TRANSIENT ISCHAEMIC ATTACK
     Dosage: 75 MG, 1 IN 1 D, ORAL
     Route: 048
     Dates: start: 20110916, end: 20110929

REACTIONS (4)
  - POLYMYALGIA RHEUMATICA [None]
  - TOOTHACHE [None]
  - TEMPORAL ARTERITIS [None]
  - MUSCULOSKELETAL PAIN [None]
